FAERS Safety Report 14966176 (Version 1)
Quarter: 2018Q2

REPORT INFORMATION
  Report Type: Report from Study
  Country: US (occurrence: US)
  Receive Date: 20180603
  Receipt Date: 20180603
  Transmission Date: 20180711
  Serious: Yes (Hospitalization, Disabling, Other)
  Sender: FDA-Public Use
  Company Number: PHHY2018US010856

PATIENT
  Age: 58 Year
  Sex: Female
  Weight: 137.6 kg

DRUGS (18)
  1. CARVEDILOL. [Concomitant]
     Active Substance: CARVEDILOL
     Indication: HYPERTENSION
     Dosage: 3.25 MG, BID
     Route: 048
     Dates: start: 20170511
  2. CETIRIZINE [Concomitant]
     Active Substance: CETIRIZINE HYDROCHLORIDE
     Indication: HYPERSENSITIVITY
     Dosage: 5 MG, QD
     Route: 048
     Dates: start: 20170331
  3. ALBUTEROL. [Concomitant]
     Active Substance: ALBUTEROL
     Indication: COUGH
     Dosage: 90 UG, PRN
     Route: 055
     Dates: start: 20170216
  4. VIGRAN [Concomitant]
     Active Substance: VITAMINS
     Indication: SUPPLEMENTATION THERAPY
     Dosage: UNK UNK, QD
     Route: 048
     Dates: start: 20170224
  5. TOPOTECAN HYDROCHLORIDE. [Suspect]
     Active Substance: TOPOTECAN HYDROCHLORIDE
     Indication: SMALL CELL LUNG CANCER
     Dosage: 1.5 MG/M2, (DAY 1-5 OF EACH 21 DAY CYCLE)
     Route: 042
     Dates: start: 20180105, end: 20180109
  6. MACROGOL [Concomitant]
     Active Substance: POLYETHYLENE GLYCOLS
     Indication: CONSTIPATION
     Dosage: 17 G, PRN
     Route: 048
     Dates: start: 20180106
  7. VITAMIN D3 [Concomitant]
     Active Substance: CHOLECALCIFEROL
     Indication: SUPPLEMENTATION THERAPY
     Dosage: 1000 U, QD
     Route: 048
     Dates: start: 20170224
  8. TOPOTECAN HYDROCHLORIDE. [Suspect]
     Active Substance: TOPOTECAN HYDROCHLORIDE
     Dosage: 0.6 MG/M2, QD (DAY 1-5 OF EACH 21 DAY CYCLE)
     Route: 042
     Dates: start: 20180222
  9. VICODIN [Concomitant]
     Active Substance: ACETAMINOPHEN\HYDROCODONE BITARTRATE
     Indication: MUSCULOSKELETAL PAIN
     Dosage: 10/650 MG, PRN
     Route: 048
     Dates: start: 20170214
  10. PROCHLORPERAZINE. [Concomitant]
     Active Substance: PROCHLORPERAZINE
     Indication: NAUSEA
     Dosage: 10 MG, PRN
     Route: 048
     Dates: start: 20170315
  11. ONDANSETRON [Concomitant]
     Active Substance: ONDANSETRON
     Indication: NAUSEA
     Dosage: 4 MG, PRN
     Route: 048
     Dates: start: 20170324
  12. AMLODIPINE [Concomitant]
     Active Substance: AMLODIPINE BESYLATE
     Indication: HYPERTENSION
     Dosage: 10 MG, QD
     Route: 048
     Dates: start: 20170511
  13. IBUPROFEN. [Concomitant]
     Active Substance: IBUPROFEN
     Indication: MUSCULOSKELETAL PAIN
     Dosage: 200 MG, PRN
     Route: 048
     Dates: start: 20170315
  14. COMBIVENT [Concomitant]
     Active Substance: ALBUTEROL SULFATE\IPRATROPIUM BROMIDE
     Indication: WHEEZING
     Dosage: 3 ML, PRN
     Route: 055
     Dates: start: 20170216
  15. MAGNESIUM [Concomitant]
     Active Substance: MAGNESIUM
     Indication: HYPOMAGNESAEMIA
     Dosage: 500 MG, QD
     Route: 048
     Dates: start: 20170413
  16. SERTRALINE [Concomitant]
     Active Substance: SERTRALINE HYDROCHLORIDE
     Indication: DEPRESSION
     Dosage: 50 MG, QD
     Route: 048
     Dates: start: 20121129
  17. MEMANTINE. [Concomitant]
     Active Substance: MEMANTINE
     Indication: PRODUCT USED FOR UNKNOWN INDICATION
     Dosage: 10 MG, QD
     Route: 048
     Dates: start: 20170606
  18. PROCHLORPERAZINE. [Concomitant]
     Active Substance: PROCHLORPERAZINE
     Indication: VOMITING

REACTIONS (23)
  - Neutropenia [Recovered/Resolved]
  - Bile duct obstruction [Unknown]
  - Pneumothorax [Unknown]
  - Thrombocytopenia [Recovering/Resolving]
  - Haemoglobin decreased [Unknown]
  - Malignant neoplasm progression [Unknown]
  - Hepatomegaly [Unknown]
  - Dermatitis [Recovered/Resolved]
  - Dyspnoea [Unknown]
  - Emphysema [Unknown]
  - Proteus test positive [Unknown]
  - Pancreatic duct stenosis [Unknown]
  - Febrile neutropenia [Unknown]
  - Abdominal hernia [Unknown]
  - Adrenal mass [Unknown]
  - Renal impairment [Unknown]
  - Sinus tachycardia [Unknown]
  - Hepatic steatosis [Unknown]
  - Mass [Unknown]
  - Cholelithiasis [Unknown]
  - Small cell lung cancer [Unknown]
  - White blood cell count decreased [Unknown]
  - Superinfection [Unknown]

NARRATIVE: CASE EVENT DATE: 20180109
